FAERS Safety Report 7820209-4 (Version None)
Quarter: 2011Q4

REPORT INFORMATION
  Report Type: 
  Country: None (occurrence: None)
  Receive Date: 20111018
  Receipt Date: 20111004
  Transmission Date: 20120403
  Serious: Yes (Hospitalization)
  Sender: FDA-Public Use
  Company Number: TR-ELI_LILLY_AND_COMPANY-TR201110000646

PATIENT
  Age: 53 Year
  Sex: Male
  Weight: 80 kg

DRUGS (1)
  1. PROZAC [Suspect]
     Dosage: UNK
     Route: 048

REACTIONS (3)
  - SYNCOPE [None]
  - CHILLS [None]
  - FEELING COLD [None]
